FAERS Safety Report 8046393-8 (Version None)
Quarter: 2012Q1

REPORT INFORMATION
  Report Type: 
  Country: None (occurrence: None)
  Receive Date: 20120113
  Receipt Date: 20120107
  Transmission Date: 20120608
  Serious: Yes (Other)
  Sender: FDA-Public Use
  Company Number: KR-PFIZER INC-2012009847

PATIENT
  Age: 55 Year
  Sex: Male

DRUGS (2)
  1. XALATAN [Suspect]
  2. XALATAN [Suspect]
     Indication: OCULAR HYPERTENSION
     Dosage: UNK, 1X/DAY
     Route: 047
     Dates: start: 20100101

REACTIONS (5)
  - RETINAL TEAR [None]
  - RETINOSCHISIS [None]
  - CONDITION AGGRAVATED [None]
  - RETINAL DETACHMENT [None]
  - DRUG INTOLERANCE [None]
